FAERS Safety Report 8020677-1 (Version None)
Quarter: 2012Q1

REPORT INFORMATION
  Report Type: 
  Country: None (occurrence: None)
  Receive Date: 20120103
  Receipt Date: 20111222
  Transmission Date: 20120608
  Serious: Yes (Disabling)
  Sender: FDA-Public Use
  Company Number: AU-ASTRAZENECA-2011SE70130

PATIENT
  Age: 841 Month
  Sex: Female

DRUGS (3)
  1. ARIMIDEX [Suspect]
     Indication: BREAST CANCER
     Route: 048
     Dates: start: 20090101
  2. CORTISONE ACETATE [Concomitant]
     Indication: ORGANISING PNEUMONIA
     Dates: end: 20110601
  3. ACTONEL [Concomitant]
     Indication: OSTEOPOROSIS
     Route: 048
     Dates: start: 20111115

REACTIONS (3)
  - MYALGIA [None]
  - TENDON PAIN [None]
  - ARTHRALGIA [None]
